FAERS Safety Report 9167744 (Version 3)
Quarter: 2013Q3

REPORT INFORMATION
  Report Type: Spontaneous
  Country: JP (occurrence: None)
  Receive Date: 20130307
  Receipt Date: 20130701
  Transmission Date: 20140515
  Serious: Yes (Other)
  Sender: FDA-Public Use
  Company Number: VAL_01448_2013

PATIENT
  Sex: 0

DRUGS (1)
  1. PARLODEL [Suspect]
     Indication: ACROMEGALY
     Dosage: DF
     Route: 048

REACTIONS (2)
  - Blood pressure decreased [None]
  - Loss of consciousness [None]
